FAERS Safety Report 13258134 (Version 1)
Quarter: 2017Q1

REPORT INFORMATION
  Report Type: Spontaneous
  Country: JP (occurrence: JP)
  Receive Date: 20170221
  Receipt Date: 20170221
  Transmission Date: 20170428
  Serious: Yes (Life-Threatening, Hospitalization, Other)
  Sender: FDA-Public Use
  Company Number: JP-ROCHE-1685361

PATIENT
  Age: 64 Year
  Sex: Male
  Weight: 43 kg

DRUGS (11)
  1. AVASTIN [Suspect]
     Active Substance: BEVACIZUMAB
     Indication: RECTAL CANCER
     Dosage: TREATMENT LINE: 1
     Route: 041
     Dates: start: 20140608, end: 20141210
  2. 5-FU [Concomitant]
     Active Substance: FLUOROURACIL
     Route: 041
     Dates: start: 20140608, end: 20141210
  3. TS-1 [Concomitant]
     Active Substance: GIMERACIL\OTERACIL\TEGAFUR
     Indication: RECTAL CANCER
     Dosage: COMPLETED TREATMENT CYCLE NUMBER : 10
     Route: 048
     Dates: start: 20150406, end: 20151027
  4. DEXART [Concomitant]
     Active Substance: DEXAMETHASONE SODIUM PHOSPHATE
     Dosage: COMPLETED TREATMENT CYCLE NUMBER : 10, INDICATION:PROPHYLAXIS OF NAUSEA AND VOMITTING.
     Route: 041
     Dates: start: 20140626, end: 20151026
  5. IRINOTECAN HYDROCHLORIDE TRIHYDRATE [Concomitant]
     Active Substance: IRINOTECAN HYDROCHLORIDE
     Indication: RECTAL CANCER
     Dosage: DOSAGE IS UNCERTAIN.
     Route: 041
  6. 5-FU [Concomitant]
     Active Substance: FLUOROURACIL
     Indication: RECTAL CANCER
     Route: 040
     Dates: start: 20140608, end: 20141210
  7. CAMPTO [Concomitant]
     Active Substance: IRINOTECAN
     Indication: RECTAL CANCER
     Dosage: COMPLETED TREATMENT CYCLE NUMBER : 10
     Route: 041
     Dates: start: 20150420, end: 20151026
  8. ALOXI [Concomitant]
     Active Substance: PALONOSETRON HYDROCHLORIDE
     Dosage: COMPLETED TREATMENT CYCLE NUMBER : 10, INDICATION:PROPHYLAXIS OF NAUSEA AND VOMITTING.
     Route: 041
     Dates: start: 20140626, end: 20151026
  9. ELPLAT [Concomitant]
     Active Substance: OXALIPLATIN
     Indication: RECTAL CANCER
     Route: 041
     Dates: start: 20140608, end: 20141210
  10. AVASTIN [Suspect]
     Active Substance: BEVACIZUMAB
     Indication: RECTAL CANCER
     Dosage: TREATMENT LINE: 2 ?COMPLETED TREATMENT CYCLE NUMBER: 24
     Route: 041
     Dates: start: 20150406, end: 20151026
  11. CALCIUM LEVOFOLINATE [Concomitant]
     Active Substance: LEVOLEUCOVORIN CALCIUM
     Indication: RECTAL CANCER
     Route: 041
     Dates: start: 20140608, end: 20141210

REACTIONS (4)
  - Small intestinal perforation [Recovered/Resolved]
  - Sepsis [Recovering/Resolving]
  - Metastases to liver [Unknown]
  - Peritonitis [Recovering/Resolving]

NARRATIVE: CASE EVENT DATE: 20151102
